FAERS Safety Report 5842792-0 (Version None)
Quarter: 2008Q3

REPORT INFORMATION
  Report Type: 
  Country: None (occurrence: None)
  Receive Date: 20080811
  Receipt Date: 20080730
  Transmission Date: 20090109
  Serious: Yes (Hospitalization)
  Sender: FDA-Public Use
  Company Number: 236954J08USA

PATIENT
  Age: 38 Year
  Sex: Male
  Weight: 117.9352 kg

DRUGS (4)
  1. REBIF [Suspect]
     Indication: MULTIPLE SCLEROSIS
     Dosage: 44 MCG, 3 IN 1 WEEKS, SUBCUTANEOUS
     Route: 058
     Dates: start: 20030415
  2. NAPROXEN [Concomitant]
  3. LYRICA [Concomitant]
  4. BACLOFEN [Concomitant]

REACTIONS (7)
  - ARTHRALGIA [None]
  - ARTHRITIS [None]
  - INCISION SITE INFECTION [None]
  - LUMBAR SPINAL STENOSIS [None]
  - MICTURITION URGENCY [None]
  - STAPHYLOCOCCAL INFECTION [None]
  - WALKING AID USER [None]
